FAERS Safety Report 11294645 (Version 3)
Quarter: 2015Q4

REPORT INFORMATION
  Report Type: Spontaneous
  Country: CA (occurrence: CA)
  Receive Date: 20150722
  Receipt Date: 20151202
  Transmission Date: 20160304
  Serious: Yes (Hospitalization, Other)
  Sender: FDA-Public Use
  Company Number: CA-ROCHE-1611687

PATIENT
  Sex: Female

DRUGS (8)
  1. SYMBICORT [Concomitant]
     Active Substance: BUDESONIDE\FORMOTEROL FUMARATE DIHYDRATE
  2. SPIRIVA [Concomitant]
     Active Substance: TIOTROPIUM BROMIDE MONOHYDRATE
  3. SINGULAIR [Concomitant]
     Active Substance: MONTELUKAST SODIUM
  4. XOLAIR [Suspect]
     Active Substance: OMALIZUMAB
     Route: 058
     Dates: end: 201410
  5. XOLAIR [Suspect]
     Active Substance: OMALIZUMAB
     Indication: ASTHMA
     Route: 058
     Dates: start: 20120618
  6. VENTOLINE [Concomitant]
     Active Substance: ALBUTEROL
  7. XOLAIR [Suspect]
     Active Substance: OMALIZUMAB
     Route: 058
     Dates: start: 201503
  8. XOLAIR [Suspect]
     Active Substance: OMALIZUMAB
     Route: 058
     Dates: end: 201411

REACTIONS (11)
  - Choking [Unknown]
  - Influenza [Unknown]
  - Allergy to animal [Unknown]
  - Asthma [Unknown]
  - Crepitations [Unknown]
  - Pulmonary embolism [Recovered/Resolved]
  - Somnolence [Unknown]
  - Obstructive airways disorder [Unknown]
  - Nasopharyngitis [Unknown]
  - Pulmonary embolism [Unknown]
  - Bronchospasm [Unknown]
